FAERS Safety Report 16579170 (Version 1)
Quarter: 2019Q3

REPORT INFORMATION
  Report Type: Spontaneous
  Country: IT (occurrence: IT)
  Receive Date: 20190716
  Receipt Date: 20190716
  Transmission Date: 20191004
  Serious: Yes (Hospitalization, Other)
  Sender: FDA-Public Use
  Company Number: IT-FERRINGPH-2019FE04188

PATIENT
  Age: 36 Year
  Sex: Male

DRUGS (9)
  1. INSULINA                           /00030501/ [Suspect]
     Active Substance: INSULIN NOS
     Indication: MUSCLE BUILDING THERAPY
     Dosage: 5 IU, 1 TIME DAILY
     Route: 058
  2. TRENBOLONE [Suspect]
     Active Substance: TRENBOLONE
     Indication: MUSCLE BUILDING THERAPY
     Dosage: 2 PER WEEK
     Route: 030
  3. TESTOVIS /00103102/ [Suspect]
     Active Substance: TESTOSTERONE PROPIONATE
     Dosage: 2-3 PER WEEK
     Route: 030
  4. NANDROLONE [Suspect]
     Active Substance: NANDROLONE
     Indication: MUSCLE BUILDING THERAPY
     Dosage: UNK
     Route: 065
  5. SOMATROPIN. [Suspect]
     Active Substance: SOMATROPIN
     Indication: MUSCLE BUILDING THERAPY
     Dosage: 2.4 U DIE
     Route: 030
  6. VITAMINA A /00056001/ [Suspect]
     Active Substance: RETINOL
     Indication: MUSCLE BUILDING THERAPY
     Dosage: 40000 IU, 1 TIME DAILY
     Route: 065
  7. TESTOVIRON                         /00103102/ [Suspect]
     Active Substance: TESTOSTERONE PROPIONATE
     Indication: MUSCLE BUILDING THERAPY
     Dosage: UNK
     Route: 065
  8. GONASI HP [Suspect]
     Active Substance: GONADOTROPHIN, CHORIONIC
     Indication: MUSCLE BUILDING THERAPY
     Dosage: UNK
     Route: 065
  9. TESTOVIRON                         /00103102/ [Suspect]
     Active Substance: TESTOSTERONE PROPIONATE
     Dosage: UNK

REACTIONS (4)
  - Incorrect route of product administration [Unknown]
  - Product use in unapproved indication [Unknown]
  - Intracranial pressure increased [Unknown]
  - Drug abuse [Unknown]
